FAERS Safety Report 7493456-1 (Version None)
Quarter: 2011Q2

REPORT INFORMATION
  Report Type: 
  Country: None (occurrence: None)
  Receive Date: 20110520
  Receipt Date: 20101025
  Transmission Date: 20111010
  Serious: Yes (Hospitalization, Other)
  Sender: FDA-Public Use
  Company Number: US-BAYER-201016012NA

PATIENT
  Age: 20 Year
  Sex: Female
  Weight: 79.819 kg

DRUGS (4)
  1. YASMIN [Suspect]
     Indication: POLYCYSTIC OVARIES
     Dosage: UNK
     Route: 048
     Dates: start: 20050701, end: 20060701
  2. PHENERGAN HCL [Concomitant]
     Dosage: 25 MG, UNK
     Route: 030
  3. METFORMIN HCL [Concomitant]
     Indication: POLYCYSTIC OVARIES
     Dosage: 500 MG, UNK
     Route: 048
  4. TORADOL [Concomitant]
     Dosage: 60 MG, UNK
     Route: 030

REACTIONS (1)
  - CHOLECYSTITIS CHRONIC [None]
